FAERS Safety Report 9286503 (Version 1)
Quarter: 2013Q2

REPORT INFORMATION
  Report Type: Spontaneous
  Country: FR (occurrence: None)
  Receive Date: 20130508
  Receipt Date: 20130508
  Transmission Date: 20140414
  Serious: Yes (Hospitalization)
  Sender: FDA-Public Use
  Company Number: SP06633

PATIENT
  Age: 59 Year
  Sex: Female

DRUGS (4)
  1. XIFAXAN [Suspect]
     Indication: HEPATIC ENCEPHALOPATHY
     Dosage: IN 1 DAY
     Route: 048
     Dates: start: 20130221, end: 20130314
  2. AMOXICILLIN/CLAVULANIC ACID [Suspect]
     Dates: start: 20130301, end: 20130304
  3. PROPRANOLOL [Concomitant]
  4. CEFTRIAXONE (INFUSION) [Concomitant]

REACTIONS (1)
  - Toxic skin eruption [None]
